FAERS Safety Report 16601245 (Version 1)
Quarter: 2019Q3

REPORT INFORMATION
  Report Type: Spontaneous
  Country: DE (occurrence: DE)
  Receive Date: 20190719
  Receipt Date: 20190719
  Transmission Date: 20191004
  Serious: Yes (Hospitalization)
  Sender: FDA-Public Use
  Company Number: DE-TEVA-2019-DE-1078085

PATIENT
  Age: 33 Year
  Sex: Male

DRUGS (14)
  1. FURADANTIN [Suspect]
     Active Substance: NITROFURANTOIN
     Dosage: 100 MG, 10.02.2018 - 20.02.2018; 20 TABL.
  2. FURADANTIN [Suspect]
     Active Substance: NITROFURANTOIN
     Dosage: 100 MG, 10.03.2018 - 15.03.2018; 1X TGL. (INSGESAMT 4 TABL.)
  3. MAGNESIUM [Suspect]
     Active Substance: MAGNESIUM
     Dosage: NK MG, NK
  4. LORAZEPAM. [Concomitant]
     Active Substance: LORAZEPAM
     Dosage: NK MG, AB 29.04.2018
  5. DYSURGAL 0,5MG [Concomitant]
     Dosage: 0.5 MG, 08.01.2018 - 11.11.2018; 4 TABL.
  6. IBUPROFEN. [Concomitant]
     Active Substance: IBUPROFEN
     Dosage: NK MG, AB 07.04.2018
  7. CIPROFLOXACIN. [Suspect]
     Active Substance: CIPROFLOXACIN
     Dosage: 250 MG, 16.01.2018 - 21.01.2018; 10 TABL.
  8. CEFUROXIM [Suspect]
     Active Substance: CEFUROXIME
     Dosage: 500 MG, 27.03.2018 - 01.04.2018; 12 TABL.
  9. CIPROFLOXACIN. [Suspect]
     Active Substance: CIPROFLOXACIN
     Dosage: 250 MG, 27.12.2017 - 31.12.2017; 9 TABL.
  10. CEFUROXIM [Suspect]
     Active Substance: CEFUROXIME
     Dosage: 500 MG, 20.03.2018 - 26.03.2018 ; 12 TABL.
  11. CIPROFLOXACIN. [Suspect]
     Active Substance: CIPROFLOXACIN
     Dosage: 500 MG, 05.02.2018 - 09.02.2018; 10 TABL.
  12. CEFUROXIM [Suspect]
     Active Substance: CEFUROXIME
     Dosage: NK MG, 31.12.2017 - 05.01.2018; 10 TABL.
  13. METAMIZOL [Concomitant]
     Active Substance: METAMIZOLE SODIUM
     Dosage: 500 MG, 08.01.2018 - 11.01.2018; 4 TABL.
  14. TAMSULOSIN [Concomitant]
     Active Substance: TAMSULOSIN
     Dosage: NK MG, .2017 - 05.01.2018

REACTIONS (5)
  - Arthralgia [Unknown]
  - Hallucination [Unknown]
  - Suicidal ideation [Unknown]
  - Fatigue [Unknown]
  - Muscular weakness [Unknown]
